FAERS Safety Report 5398211-4 (Version None)
Quarter: 2007Q3

REPORT INFORMATION
  Report Type: 
  Country: None (occurrence: None)
  Receive Date: 20070726
  Receipt Date: 20070717
  Transmission Date: 20080115
  Serious: Yes (Hospitalization)
  Sender: FDA-Public Use
  Company Number: US-GILEAD-2007-0012713

PATIENT
  Sex: Male
  Weight: 52.392 kg

DRUGS (9)
  1. VIREAD [Suspect]
     Indication: HIV TEST POSITIVE
     Route: 048
     Dates: start: 20070523, end: 20070623
  2. COMBIVIR [Suspect]
     Indication: HIV TEST POSITIVE
     Route: 048
     Dates: start: 20070524, end: 20070623
  3. UK-427857 [Concomitant]
     Indication: HIV TEST POSITIVE
     Route: 048
     Dates: start: 20070523
  4. NORVIR [Concomitant]
     Indication: HIV TEST POSITIVE
     Route: 048
     Dates: start: 20070523
  5. DARUNAVIR [Concomitant]
     Indication: HIV TEST POSITIVE
     Route: 048
     Dates: start: 20070523
  6. MS CONTIN [Concomitant]
     Indication: NEURALGIA
     Route: 048
     Dates: start: 20020827
  7. DAPSONE [Concomitant]
     Indication: PROPHYLAXIS
     Dates: start: 19951020
  8. VALCYTE [Concomitant]
     Dates: start: 20060120
  9. REMERON [Concomitant]
     Indication: DEPRESSION
     Dates: start: 20030506

REACTIONS (1)
  - ANAEMIA [None]
